FAERS Safety Report 5455231-9 (Version None)
Quarter: 2007Q3

REPORT INFORMATION
  Report Type: 
  Country: None (occurrence: None)
  Receive Date: 20070918
  Receipt Date: 20070912
  Transmission Date: 20080115
  Serious: Yes (Other)
  Sender: FDA-Public Use
  Company Number: PHEH2007US12291

PATIENT
  Sex: Male

DRUGS (2)
  1. SANDOSTATIN LAR [Suspect]
     Indication: CARCINOID TUMOUR
     Dosage: 20 MG, UNK
     Dates: start: 19990801
  2. SANDOSTATIN LAR [Suspect]
     Dosage: 30 MG, UNK

REACTIONS (3)
  - CARDIAC FIBRILLATION [None]
  - HEART VALVE INCOMPETENCE [None]
  - THERAPEUTIC RESPONSE UNEXPECTED [None]
